FAERS Safety Report 13623567 (Version 1)
Quarter: 2017Q2

REPORT INFORMATION
  Report Type: Spontaneous
  Country: US (occurrence: US)
  Receive Date: 20170608
  Receipt Date: 20170608
  Transmission Date: 20170830
  Serious: No
  Sender: FDA-Public Use
  Company Number: US-TEVA-758737ACC

PATIENT
  Age: 74 Year
  Sex: Female

DRUGS (1)
  1. BYSTOLIC [Suspect]
     Active Substance: NEBIVOLOL HYDROCHLORIDE
     Route: 065

REACTIONS (2)
  - Nightmare [Unknown]
  - Insomnia [Unknown]
